FAERS Safety Report 7677981-6 (Version None)
Quarter: 2011Q3

REPORT INFORMATION
  Report Type: 
  Country: None (occurrence: None)
  Receive Date: 20110811
  Receipt Date: 20110804
  Transmission Date: 20111222
  Serious: Yes (Hospitalization)
  Sender: FDA-Public Use
  Company Number: US-GLAXOSMITHKLINE-A0932755A

PATIENT
  Age: 55 Year
  Sex: Female
  Weight: 61.1 kg

DRUGS (3)
  1. BLINDED TRIAL MEDICATION [Suspect]
     Indication: NEOPLASM MALIGNANT
     Dosage: 200MG TWICE PER DAY
     Route: 048
     Dates: start: 20110223, end: 20110424
  2. ZOFRAN [Suspect]
     Indication: NAUSEA
     Route: 048
     Dates: start: 20110309, end: 20110425
  3. NORCO [Suspect]
     Indication: PAIN
     Route: 048
     Dates: start: 20110120, end: 20110425

REACTIONS (2)
  - ABDOMINAL PAIN [None]
  - NAUSEA [None]
